FAERS Safety Report 6711482-4 (Version None)
Quarter: 2010Q2

REPORT INFORMATION
  Report Type: 
  Country: None (occurrence: None)
  Receive Date: 20100505
  Receipt Date: 20100429
  Transmission Date: 20101027
  Serious: Yes (Death)
  Sender: FDA-Public Use
  Company Number: DE-CELGENEUS-062-50794-10042661

PATIENT
  Age: 80 Year
  Sex: Male

DRUGS (1)
  1. VIDAZA [Suspect]
     Route: 065

REACTIONS (2)
  - DEATH [None]
  - NO THERAPEUTIC RESPONSE [None]
